FAERS Safety Report 11307265 (Version 1)
Quarter: 2015Q3

REPORT INFORMATION
  Report Type: Spontaneous
  Country: US (occurrence: US)
  Receive Date: 20150723
  Receipt Date: 20150723
  Transmission Date: 20151125
  Serious: No
  Sender: FDA-Public Use
  Company Number: US-BAUSCH-SP07997

PATIENT
  Sex: Female

DRUGS (3)
  1. DOXYCLYCLINE [Concomitant]
     Indication: BRONCHITIS
  2. XIFAXAN [Suspect]
     Active Substance: RIFAXIMIN
     Indication: IRRITABLE BOWEL SYNDROME
     Route: 048
  3. CIPROFLOXACIN. [Concomitant]
     Active Substance: CIPROFLOXACIN
     Indication: BRONCHITIS

REACTIONS (1)
  - Pruritus [Not Recovered/Not Resolved]
